FAERS Safety Report 14837803 (Version 2)
Quarter: 2018Q2

REPORT INFORMATION
  Report Type: Spontaneous
  Country: US (occurrence: US)
  Receive Date: 20180502
  Receipt Date: 20180619
  Transmission Date: 20180711
  Serious: No
  Sender: FDA-Public Use
  Company Number: US-TEVA-2018-US-889103

PATIENT
  Sex: Male

DRUGS (2)
  1. AMOXICILLIN. [Suspect]
     Active Substance: AMOXICILLIN
     Indication: URINARY TRACT INFECTION
     Dosage: 1000 MILLIGRAM DAILY;
     Route: 065
  2. AMOXICILLIN. [Suspect]
     Active Substance: AMOXICILLIN
     Dosage: 1500 MILLIGRAM DAILY;
     Route: 065

REACTIONS (1)
  - Drug ineffective [Unknown]
